FAERS Safety Report 7999455-5 (Version None)
Quarter: 2011Q4

REPORT INFORMATION
  Report Type: 
  Country: None (occurrence: None)
  Receive Date: 20111221
  Receipt Date: 20111220
  Transmission Date: 20120403
  Serious: No
  Sender: FDA-Public Use
  Company Number: US-PFIZER INC-2011309257

PATIENT
  Sex: Male

DRUGS (1)
  1. XANAX [Suspect]
     Dosage: 0.5 MG, UNK

REACTIONS (3)
  - SOMNOLENCE [None]
  - HEADACHE [None]
  - NAUSEA [None]
